FAERS Safety Report 10206258 (Version 2)
Quarter: 2014Q2

REPORT INFORMATION
  Report Type: Spontaneous
  Country: CN (occurrence: CN)
  Receive Date: 20140530
  Receipt Date: 20140603
  Transmission Date: 20141212
  Serious: Yes (Hospitalization, Other)
  Sender: FDA-Public Use
  Company Number: CN-BAYER-2014-077789

PATIENT
  Age: 49 Year
  Sex: Female

DRUGS (2)
  1. MIRENA [Suspect]
     Indication: ADENOMYOSIS
     Dosage: DAILY DOSE 20 ?G
     Dates: start: 20100129, end: 201309
  2. MIRENA [Suspect]
     Indication: UTERINE LEIOMYOMA

REACTIONS (16)
  - Deep vein thrombosis [None]
  - Device dislocation [None]
  - Depression [None]
  - Arteriosclerosis [None]
  - Hepatic cyst [None]
  - Vaginal haemorrhage [None]
  - Procedural pain [None]
  - Off label use [None]
  - Breast pain [None]
  - Ovarian cyst [None]
  - Back pain [None]
  - Bone pain [None]
  - Thyroid neoplasm [None]
  - Insomnia [None]
  - Constipation [None]
  - Weight decreased [None]
